FAERS Safety Report 12648541 (Version 7)
Quarter: 2019Q1

REPORT INFORMATION
  Report Type: Report from Study
  Country: DE (occurrence: DE)
  Receive Date: 20160812
  Receipt Date: 20190313
  Transmission Date: 20190417
  Serious: Yes (Death, Hospitalization, Other)
  Sender: FDA-Public Use
  Company Number: DE-INCYTE CORPORATION-2013IN002399

PATIENT

DRUGS (16)
  1. PANTOPRAZOL [Concomitant]
     Active Substance: PANTOPRAZOLE SODIUM
     Indication: PRODUCT USED FOR UNKNOWN INDICATION
     Dosage: 40 MG, QD
     Route: 065
  2. NOVAMINSULFON [Concomitant]
     Active Substance: METAMIZOLE
     Indication: PAIN
     Dosage: UNK, PRN
     Route: 065
     Dates: start: 20090617
  3. RAMILICH [Concomitant]
     Active Substance: RAMIPRIL
     Indication: HYPERTENSION
  4. METAMIZOLE [Concomitant]
     Active Substance: METAMIZOLE
     Indication: PAIN
     Dosage: UNK
     Route: 065
     Dates: start: 20090617
  5. INCB018424 [Suspect]
     Active Substance: RUXOLITINIB
     Indication: MYELOFIBROSIS
     Dosage: 15 MG, QD
     Route: 048
     Dates: start: 20130703, end: 20130827
  6. INCB018424 [Suspect]
     Active Substance: RUXOLITINIB
     Dosage: UNK MG/DAY/ONCE
     Route: 048
     Dates: start: 20130828, end: 20130924
  7. DELIX                              /00885601/ [Concomitant]
     Active Substance: RAMIPRIL
     Indication: CARDIAC FAILURE
     Dosage: 7.5 MG, QD
     Route: 065
  8. ALLOPURINOL. [Concomitant]
     Active Substance: ALLOPURINOL
     Indication: BLOOD URIC ACID INCREASED
     Dosage: 300 MG, QD
     Route: 065
     Dates: start: 20111017
  9. INCB018424 [Suspect]
     Active Substance: RUXOLITINIB
     Dosage: 10 MG/DAY/TWICE
     Route: 048
     Dates: start: 20140103, end: 20140218
  10. INCB018424 [Suspect]
     Active Substance: RUXOLITINIB
     Dosage: 15 MG/DAY/TWICE
     Route: 048
     Dates: start: 20140219, end: 20140223
  11. DELIX                              /00885601/ [Concomitant]
     Active Substance: RAMIPRIL
     Dosage: 1 DF, TID
     Route: 065
  12. KREON [Concomitant]
     Active Substance: PANCRELIPASE
     Indication: PANCREATIC FAILURE
     Dosage: 5 MG, TID
     Route: 065
  13. INCB018424 [Suspect]
     Active Substance: RUXOLITINIB
     Dosage: 10 MG, QD
     Route: 048
     Dates: start: 20131120, end: 20131125
  14. EUTHYROX [Concomitant]
     Active Substance: LEVOTHYROXINE SODIUM
     Indication: HYPOTHYROIDISM
     Dosage: 125 MG, QD
     Route: 065
  15. RAMILICH [Concomitant]
     Active Substance: RAMIPRIL
     Indication: CARDIAC FAILURE
     Dosage: 5 MG, QD
     Route: 065
  16. STILNOX [Concomitant]
     Active Substance: ZOLPIDEM TARTRATE
     Indication: SLEEP DISORDER
     Dosage: 40 MG, PRN
     Route: 065
     Dates: start: 20130301

REACTIONS (34)
  - Myelofibrosis [Fatal]
  - Oedema [Recovering/Resolving]
  - Haemoglobin decreased [Recovering/Resolving]
  - Epistaxis [Fatal]
  - Fall [Recovered/Resolved]
  - Fatigue [Recovered/Resolved]
  - Decreased appetite [Recovered/Resolved]
  - Gastritis erosive [Recovering/Resolving]
  - Hypokalaemia [Recovered/Resolved]
  - Infection [Recovering/Resolving]
  - Oesophageal stenosis [Unknown]
  - Anaemia [Recovering/Resolving]
  - Pneumonia [Fatal]
  - Gait disturbance [Not Recovered/Not Resolved]
  - Platelet count decreased [Recovering/Resolving]
  - Oesophageal candidiasis [Unknown]
  - Diarrhoea [Recovered/Resolved]
  - Diarrhoea [Recovered/Resolved]
  - Diarrhoea [Recovered/Resolved]
  - Dizziness [Not Recovered/Not Resolved]
  - Pericardial effusion [Not Recovered/Not Resolved]
  - Fatigue [Recovered/Resolved]
  - Wound [Recovered/Resolved]
  - Fluid retention [Recovering/Resolving]
  - Vomiting [Recovered/Resolved]
  - Decreased appetite [Recovered/Resolved]
  - Oedema peripheral [Not Recovered/Not Resolved]
  - Weight decreased [Recovering/Resolving]
  - General physical health deterioration [Recovering/Resolving]
  - Diarrhoea [Recovered/Resolved]
  - Diarrhoea [Recovered/Resolved]
  - Dyspnoea [Recovering/Resolving]
  - Melaena [Recovering/Resolving]
  - Fatigue [Recovered/Resolved]

NARRATIVE: CASE EVENT DATE: 20130724
